FAERS Safety Report 9331878 (Version 2)
Quarter: 2013Q3

REPORT INFORMATION
  Report Type: Spontaneous
  Country: US (occurrence: US)
  Receive Date: 20130605
  Receipt Date: 20130701
  Transmission Date: 20140515
  Serious: No
  Sender: FDA-Public Use
  Company Number: US-009507513-1306USA000918

PATIENT
  Age: 16 Year
  Sex: Female
  Weight: 63.49 kg

DRUGS (2)
  1. IMPLANON [Suspect]
     Indication: CONTRACEPTION
     Dosage: 1 ROD UP TO 3 YEARS, IMPLANT LEFT ARM
     Route: 059
     Dates: start: 20111010
  2. CITALOPRAM [Concomitant]
     Dosage: 20MG 1 X

REACTIONS (2)
  - Polymenorrhoea [Unknown]
  - Amenorrhoea [Unknown]
